FAERS Safety Report 9303669 (Version 32)
Quarter: 2015Q3

REPORT INFORMATION
  Report Type: Report from Study
  Country: CA (occurrence: CA)
  Receive Date: 20130522
  Receipt Date: 20150902
  Transmission Date: 20151125
  Serious: Yes (Hospitalization, Other)
  Sender: FDA-Public Use
  Company Number: CA-ROCHE-1132585

PATIENT
  Age: 62 Year
  Sex: Female
  Weight: 104 kg

DRUGS (21)
  1. RITUXAN [Suspect]
     Active Substance: RITUXIMAB
     Indication: PRODUCT USED FOR UNKNOWN INDICATION
     Route: 065
     Dates: start: 201404
  2. RHINOCORT [Concomitant]
     Active Substance: BUDESONIDE
  3. ACTEMRA [Suspect]
     Active Substance: TOCILIZUMAB
     Route: 042
     Dates: start: 20131227
  4. RABEPRAZOLE [Concomitant]
     Active Substance: RABEPRAZOLE
  5. HYDROCHLOROTHIAZIDE. [Concomitant]
     Active Substance: HYDROCHLOROTHIAZIDE
  6. TYLENOL WITH CODEINE [Concomitant]
     Active Substance: ACETAMINOPHEN\CODEINE PHOSPHATE
     Indication: PAIN
     Route: 065
  7. CRESTOR [Concomitant]
     Active Substance: ROSUVASTATIN CALCIUM
  8. LANTUS [Concomitant]
     Active Substance: INSULIN GLARGINE
  9. GLYCONON [Concomitant]
  10. TYLENOL ARTHRITIS PAIN [Concomitant]
     Active Substance: ACETAMINOPHEN
     Route: 065
  11. ACTEMRA [Suspect]
     Active Substance: TOCILIZUMAB
     Route: 042
     Dates: start: 20120716
  12. METHOTREXATE [Suspect]
     Active Substance: METHOTREXATE
     Indication: PRODUCT USED FOR UNKNOWN INDICATION
     Route: 065
     Dates: end: 201310
  13. PREDNISONE. [Concomitant]
     Active Substance: PREDNISONE
  14. PLAVIX [Concomitant]
     Active Substance: CLOPIDOGREL BISULFATE
  15. GLIBENCLAMIDE [Concomitant]
     Active Substance: GLYBURIDE
  16. GEMFIBROZIL. [Concomitant]
     Active Substance: GEMFIBROZIL
  17. ACTEMRA [Suspect]
     Active Substance: TOCILIZUMAB
     Indication: RHEUMATOID ARTHRITIS
     Dosage: AT DOSE 8MG/KG
     Route: 042
     Dates: start: 20120716
  18. ACTEMRA [Suspect]
     Active Substance: TOCILIZUMAB
     Route: 042
     Dates: start: 20140220
  19. ATACAND [Concomitant]
     Active Substance: CANDESARTAN CILEXETIL
  20. ACTEMRA [Suspect]
     Active Substance: TOCILIZUMAB
     Route: 042
     Dates: start: 20140123
  21. PULMICORT TURBUHALER [Concomitant]
     Active Substance: BUDESONIDE

REACTIONS (44)
  - Hepatic steatosis [Not Recovered/Not Resolved]
  - Cataract [Recovering/Resolving]
  - Headache [Recovered/Resolved]
  - Catheter site pruritus [Recovered/Resolved]
  - Influenza [Recovering/Resolving]
  - Weight decreased [Not Recovered/Not Resolved]
  - Hypotension [Unknown]
  - Injection site bruising [Unknown]
  - Pain [Unknown]
  - Renal cyst [Not Recovered/Not Resolved]
  - Diabetes mellitus inadequate control [Not Recovered/Not Resolved]
  - Malaise [Not Recovered/Not Resolved]
  - Nasopharyngitis [Not Recovered/Not Resolved]
  - Oxygen saturation decreased [Unknown]
  - Skin ulcer [Not Recovered/Not Resolved]
  - Headache [Recovered/Resolved]
  - Haemoglobin decreased [Not Recovered/Not Resolved]
  - Infusion related reaction [Unknown]
  - Lip infection [Recovered/Resolved]
  - Limb injury [Unknown]
  - Abdominal pain upper [Unknown]
  - Diverticulitis [Recovering/Resolving]
  - Arthralgia [Recovering/Resolving]
  - Hypotension [Unknown]
  - Blood pressure increased [Unknown]
  - Rhinorrhoea [Not Recovered/Not Resolved]
  - Cough [Unknown]
  - Blood pressure increased [Unknown]
  - Bronchitis viral [Unknown]
  - Cough [Not Recovered/Not Resolved]
  - Bronchitis [Not Recovered/Not Resolved]
  - Abdominal pain [Recovered/Resolved]
  - Malaise [Not Recovered/Not Resolved]
  - Blood pressure diastolic decreased [Unknown]
  - Pneumonia [Unknown]
  - Rash [Not Recovered/Not Resolved]
  - Liver disorder [Not Recovered/Not Resolved]
  - Oral herpes [Recovered/Resolved]
  - Malaise [Not Recovered/Not Resolved]
  - Arthralgia [Not Recovered/Not Resolved]
  - Oxygen saturation decreased [Unknown]
  - Wheezing [Unknown]
  - Weight decreased [Unknown]
  - Lower extremity mass [Not Recovered/Not Resolved]

NARRATIVE: CASE EVENT DATE: 201209
